FAERS Safety Report 23280410 (Version 1)
Quarter: 2023Q4

REPORT INFORMATION
  Report Type: Spontaneous
  Country: IN (occurrence: IN)
  Receive Date: 20231211
  Receipt Date: 20231211
  Transmission Date: 20240110
  Serious: Yes (Life-Threatening, Hospitalization)
  Sender: FDA-Public Use
  Company Number: IN-JNJFOC-20231200095

PATIENT
  Age: 80 Year
  Sex: Male
  Weight: 70 kg

DRUGS (13)
  1. ABIRATERONE ACETATE [Suspect]
     Active Substance: ABIRATERONE ACETATE
     Indication: Prostate cancer metastatic
     Route: 048
  2. PREDNISOLONE [Concomitant]
     Active Substance: PREDNISOLONE
  3. FENTANYL [Concomitant]
     Active Substance: FENTANYL\FENTANYL CITRATE
  4. FENTANYL [Concomitant]
     Active Substance: FENTANYL\FENTANYL CITRATE
  5. PROPOFOL [Concomitant]
     Active Substance: PROPOFOL
  6. VECURONIUM [Concomitant]
     Active Substance: VECURONIUM BROMIDE
  7. SEVOFLURANE [Concomitant]
     Active Substance: SEVOFLURANE
  8. VECURONIUM [Concomitant]
     Active Substance: VECURONIUM BROMIDE
  9. ACETAMINOPHEN [Concomitant]
     Active Substance: ACETAMINOPHEN
  10. DEXAMETHASONE [Concomitant]
     Active Substance: DEXAMETHASONE
     Route: 042
  11. DEXAMETHASONE [Concomitant]
     Active Substance: DEXAMETHASONE
     Dosage: FOLLOWED BY 8 HOURLY
     Route: 042
  12. NEOSTIGMINE [Concomitant]
     Active Substance: NEOSTIGMINE
  13. GLYCOPYRROLATE [Concomitant]
     Active Substance: GLYCOPYRROLATE

REACTIONS (3)
  - Hypokalaemia [Recovered/Resolved]
  - Quadriparesis [Recovered/Resolved]
  - Aphonia [Recovered/Resolved]
